FAERS Safety Report 21945590 (Version 2)
Quarter: 2023Q1

REPORT INFORMATION
  Report Type: Spontaneous
  Country: FI (occurrence: FI)
  Receive Date: 20230202
  Receipt Date: 20230210
  Transmission Date: 20230417
  Serious: Yes (Other)
  Sender: FDA-Public Use
  Company Number: FI-002147023-NVSC2023FI020712

PATIENT
  Age: 78 Year
  Sex: Female

DRUGS (3)
  1. TIMOLOL MALEATE\TRAVOPROST [Suspect]
     Active Substance: TIMOLOL MALEATE\TRAVOPROST
     Indication: Exfoliation glaucoma
     Dosage: UNK, QD
     Route: 065
  2. AZOPT [Suspect]
     Active Substance: BRINZOLAMIDE
     Indication: Exfoliation glaucoma
     Dosage: UNK UNK, BID
     Route: 065
     Dates: end: 201910
  3. TIMOLOL MALEATE\TRAVOPROST [Concomitant]
     Active Substance: TIMOLOL MALEATE\TRAVOPROST
     Indication: Product used for unknown indication
     Dosage: UNK, QD (USED MANY YEARS  BEFORE AND IT IS STILL GOING ON)
     Route: 065

REACTIONS (1)
  - Retinal deposits [Unknown]
